FAERS Safety Report 13646884 (Version 1)
Quarter: 2017Q2

REPORT INFORMATION
  Report Type: Spontaneous
  Country: PL (occurrence: PL)
  Receive Date: 20170613
  Receipt Date: 20170613
  Transmission Date: 20170830
  Serious: Yes (Death, Other)
  Sender: FDA-Public Use
  Company Number: PHHY2017PL085778

PATIENT
  Age: 45 Year
  Sex: Male

DRUGS (1)
  1. CICLOSPORIN [Suspect]
     Active Substance: CYCLOSPORINE
     Indication: STEM CELL TRANSPLANT
     Dosage: UNK
     Route: 065

REACTIONS (22)
  - Vomiting [Unknown]
  - Diarrhoea [Unknown]
  - Dyspnoea [Unknown]
  - Nephropathy toxic [Unknown]
  - Nausea [Unknown]
  - Candida infection [Fatal]
  - Pyrexia [Unknown]
  - Fatigue [Unknown]
  - Septic shock [Unknown]
  - Epstein-Barr virus infection [Fatal]
  - Adenovirus infection [Fatal]
  - Cytomegalovirus infection [Fatal]
  - Acute kidney injury [Unknown]
  - Thrombotic thrombocytopenic purpura [Unknown]
  - Pulmonary mycosis [Unknown]
  - Hypoglycaemia [Unknown]
  - Fungal infection [Fatal]
  - Renal disorder [Unknown]
  - Lactic acidosis [Unknown]
  - Giardiasis [Unknown]
  - Aspergillus infection [Fatal]
  - Acute graft versus host disease [Unknown]
